FAERS Safety Report 22006609 (Version 1)
Quarter: 2023Q1

REPORT INFORMATION
  Report Type: Spontaneous
  Country: None (occurrence: IL)
  Receive Date: 20230217
  Receipt Date: 20230217
  Transmission Date: 20230418
  Serious: Yes (Hospitalization, Other)
  Sender: FDA-Public Use
  Company Number: IL-Oxford Pharmaceuticals, LLC-2138059

PATIENT
  Age: 73 Year
  Sex: Female

DRUGS (9)
  1. SIMVASTATIN [Suspect]
     Active Substance: SIMVASTATIN
     Indication: Hyperlipidaemia
  2. RIBOCICLIB [Interacting]
     Active Substance: RIBOCICLIB
  3. BISOPROLOL [Concomitant]
     Active Substance: BISOPROLOL
  4. APIXABID [Concomitant]
  5. GLARGILIN [Concomitant]
  6. HYDROCHLOROTHIAZIDE\VALSARTAN [Concomitant]
     Active Substance: HYDROCHLOROTHIAZIDE\VALSARTAN
  7. TAMOXIFEN [Concomitant]
     Active Substance: TAMOXIFEN
     Dates: start: 200807
  8. ANASTROZOLE [Concomitant]
     Active Substance: ANASTROZOLE
  9. LETROZOLE [Concomitant]
     Active Substance: LETROZOLE
     Dates: start: 202008

REACTIONS (3)
  - Drug interaction [Unknown]
  - Rhabdomyolysis [Recovered/Resolved]
  - Acute kidney injury [Recovered/Resolved]
